FAERS Safety Report 4816980-6 (Version None)
Quarter: 2005Q4

REPORT INFORMATION
  Report Type: 
  Country: None (occurrence: None)
  Receive Date: 20051031
  Receipt Date: 20051031
  Transmission Date: 20060501
  Serious: Yes (Hospitalization)
  Sender: FDA-Public Use
  Company Number: None

PATIENT
  Age: 80 Year
  Sex: Male

DRUGS (7)
  1. ATENOLOL [Suspect]
     Indication: HYPERTENSION
     Dosage: 100 MG QD
     Dates: start: 20020801
  2. TIMOLOL MALEATE [Suspect]
     Indication: GLAUCOMA
     Dosage: 1 DROP Q12 H
     Dates: start: 20001001
  3. BRIMONIDINE [Concomitant]
  4. MAXZIDE [Concomitant]
  5. NIFEDIPINE [Concomitant]
  6. TAMSULOSIN [Concomitant]
  7. OMEPRAZOLE [Concomitant]

REACTIONS (1)
  - BRADYCARDIA [None]
